FAERS Safety Report 6058476-2 (Version None)
Quarter: 2009Q1

REPORT INFORMATION
  Report Type: 
  Country: None (occurrence: None)
  Receive Date: 20090127
  Receipt Date: 20090127
  Transmission Date: 20090719
  Serious: Yes (Hospitalization)
  Sender: FDA-Public Use
  Company Number: None

PATIENT
  Sex: Female

DRUGS (1)
  1. MINOCYCLINE [Suspect]
     Indication: AUTOIMMUNE DISORDER
     Dosage: 100 MG 1XD PO
     Route: 048

REACTIONS (7)
  - ABDOMINAL PAIN [None]
  - ANTI-PLATELET ANTIBODY POSITIVE [None]
  - ANTI-THYROID ANTIBODY POSITIVE [None]
  - ANTINUCLEAR ANTIBODY POSITIVE [None]
  - AUTOIMMUNE DISORDER [None]
  - HISTONE ANTIBODY POSITIVE [None]
  - THROMBOCYTOPENIA [None]
